FAERS Safety Report 7028080-8 (Version None)
Quarter: 2010Q4

REPORT INFORMATION
  Report Type: 
  Country: None (occurrence: None)
  Receive Date: 20101005
  Receipt Date: 20100929
  Transmission Date: 20110411
  Serious: Yes (Hospitalization)
  Sender: FDA-Public Use
  Company Number: FR-BAYER-201021201GPV

PATIENT
  Age: 68 Year
  Sex: Male
  Weight: 54 kg

DRUGS (6)
  1. SORAFENIB [Suspect]
     Indication: HEPATIC NEOPLASM MALIGNANT
     Dosage: TOTAL DAILY DOSE: 800 MG
     Route: 048
     Dates: start: 20100121, end: 20100310
  2. SORAFENIB [Suspect]
     Dosage: TOTAL DAILY DOSE: 800 MG
     Route: 048
     Dates: start: 20100311, end: 20100322
  3. PLACEBO TO ERLOTINIB [Suspect]
     Indication: HEPATIC NEOPLASM MALIGNANT
     Dosage: TOTAL DAILY DOSE: 150 MG
     Route: 048
     Dates: start: 20100121, end: 20100310
  4. PLACEBO TO ERLOTINIB [Suspect]
     Dosage: TOTAL DAILY DOSE: 150 MG
     Route: 048
     Dates: start: 20100311, end: 20100322
  5. METFORMIN HCL [Concomitant]
     Indication: DIABETES MELLITUS
     Route: 048
  6. LODOZ [Concomitant]
     Indication: HYPERTENSION
     Route: 048
     Dates: start: 20100106

REACTIONS (1)
  - GENERAL PHYSICAL HEALTH DETERIORATION [None]
